FAERS Safety Report 7980853-0 (Version None)
Quarter: 2011Q4

REPORT INFORMATION
  Report Type: 
  Country: None (occurrence: None)
  Receive Date: 20111214
  Receipt Date: 20111208
  Transmission Date: 20120403
  Serious: Yes (Other)
  Sender: FDA-Public Use
  Company Number: US-ROCHE-794250

PATIENT
  Sex: Female
  Weight: 44.492 kg

DRUGS (2)
  1. ACCUTANE [Suspect]
     Indication: ACNE
     Route: 065
     Dates: start: 20000101, end: 20010101
  2. BIRTH CONTROL PILLS (UNK INGREDIENTS) [Concomitant]

REACTIONS (7)
  - IRRITABLE BOWEL SYNDROME [None]
  - DEPRESSION [None]
  - CONVULSION [None]
  - COLITIS ULCERATIVE [None]
  - INFLAMMATORY BOWEL DISEASE [None]
  - HAEMORRHOIDS [None]
  - INTESTINAL OBSTRUCTION [None]
